FAERS Safety Report 8084819-4 (Version None)
Quarter: 2012Q1

REPORT INFORMATION
  Report Type: 
  Country: None (occurrence: None)
  Receive Date: 20120128
  Receipt Date: 20110321
  Transmission Date: 20120608
  Serious: Yes (Other)
  Sender: FDA-Public Use
  Company Number: US-ABBOTT-11P-163-0713591-00

PATIENT
  Age: 66 Year
  Sex: Female

DRUGS (5)
  1. MACRODANTIN [Concomitant]
     Indication: PRODUCT USED FOR UNKNOWN INDICATION
  2. LOVOXYL [Concomitant]
     Indication: PRODUCT USED FOR UNKNOWN INDICATION
  3. ALBUTEROL [Concomitant]
     Indication: PRODUCT USED FOR UNKNOWN INDICATION
  4. EFFEXOR [Concomitant]
     Indication: PRODUCT USED FOR UNKNOWN INDICATION
  5. HUMIRA [Suspect]
     Indication: ANKYLOSING SPONDYLITIS
     Dates: start: 20090101, end: 20090101

REACTIONS (2)
  - BREAST CANCER METASTATIC [None]
  - LYMPHOEDEMA [None]
